FAERS Safety Report 6402534-7 (Version None)
Quarter: 2009Q4

REPORT INFORMATION
  Report Type: 
  Country: None (occurrence: None)
  Receive Date: 20091009
  Receipt Date: 20090930
  Transmission Date: 20100525
  Serious: Yes (Life-Threatening, Hospitalization, Other)
  Sender: FDA-Public Use
  Company Number: ADR34592009

PATIENT
  Sex: Female

DRUGS (7)
  1. CIPROFLOXACIN [Suspect]
     Indication: GASTROENTERITIS
     Dosage: 500 MG ORAL
     Route: 048
     Dates: start: 20060109, end: 20060112
  2. ATENOLOL [Concomitant]
  3. BENDROFLUAZIDE [Concomitant]
  4. LORAZEPAM [Concomitant]
  5. MEBEVERINE [Concomitant]
  6. PROCHLORPERAZINE [Concomitant]
  7. ZOLPIDEM [Concomitant]

REACTIONS (2)
  - HEPATORENAL SYNDROME [None]
  - SPEECH DISORDER [None]
